FAERS Safety Report 11732214 (Version 1)
Quarter: 2015Q4

REPORT INFORMATION
  Report Type: Spontaneous
  Country: DE (occurrence: DE)
  Receive Date: 20151113
  Receipt Date: 20151113
  Transmission Date: 20160304
  Serious: Yes (Congenital Anomaly)
  Sender: FDA-Public Use
  Company Number: DE-HOSPIRA-3069075

PATIENT
  Sex: Male
  Weight: 3.95 kg

DRUGS (6)
  1. INFLIXIMAB [Suspect]
     Active Substance: INFLIXIMAB
     Indication: PRODUCT USED FOR UNKNOWN INDICATION
     Route: 064
  2. AZATHIOPRINE. [Suspect]
     Active Substance: AZATHIOPRINE
     Indication: PRODUCT USED FOR UNKNOWN INDICATION
     Route: 064
  3. CEFUROXIME SODIUM. [Suspect]
     Active Substance: CEFUROXIME SODIUM
     Indication: PRODUCT USED FOR UNKNOWN INDICATION
     Route: 064
  4. ANTI-D IMMUNOGLOBULIN [Suspect]
     Active Substance: IMMUNE GLOBULIN, ANTI-HUMAN
     Indication: PRODUCT USED FOR UNKNOWN INDICATION
     Route: 064
  5. INSULIN HUMAN [Suspect]
     Active Substance: INSULIN HUMAN
     Indication: PRODUCT USED FOR UNKNOWN INDICATION
     Route: 064
  6. ACICLOVIR [Suspect]
     Active Substance: ACYCLOVIR
     Indication: PRODUCT USED FOR UNKNOWN INDICATION
     Route: 064

REACTIONS (5)
  - Congenital megaureter [Unknown]
  - Renal hypertrophy [Unknown]
  - Congenital renal disorder [Unknown]
  - Maternal exposure timing unspecified [Unknown]
  - Congenital hydronephrosis [Unknown]
